FAERS Safety Report 9728972 (Version 2)
Quarter: 2014Q1

REPORT INFORMATION
  Report Type: Spontaneous
  Country: US (occurrence: US)
  Receive Date: 20131204
  Receipt Date: 20140203
  Transmission Date: 20141002
  Serious: Yes (Other)
  Sender: FDA-Public Use
  Company Number: US-ELI_LILLY_AND_COMPANY-US201311009285

PATIENT
  Age: 68 Year
  Sex: Male
  Weight: 104 kg

DRUGS (1)
  1. AXIRON [Suspect]
     Indication: HYPOGONADISM
     Dosage: 30 MG, OTHER
     Route: 061
     Dates: start: 20120515, end: 20131025

REACTIONS (2)
  - Atrial fibrillation [Recovering/Resolving]
  - Deep vein thrombosis [Recovering/Resolving]
